FAERS Safety Report 8522053-1 (Version None)
Quarter: 2012Q3

REPORT INFORMATION
  Report Type: 
  Country: None (occurrence: None)
  Receive Date: 20120719
  Receipt Date: 20120717
  Transmission Date: 20120928
  Serious: Yes (Hospitalization, Other)
  Sender: FDA-Public Use
  Company Number: PHHO2012US009876

PATIENT
  Sex: Male
  Weight: 54.3 kg

DRUGS (15)
  1. BACLOFEN [Concomitant]
     Dosage: 10 MG, QID
     Route: 048
  2. MS CONTIN [Concomitant]
     Dosage: 30 MG, Q8H
     Route: 048
  3. IRINOTECAN HCL [Suspect]
     Indication: ADENOCARCINOMA PANCREAS
     Dosage: 150 MG/M2, UNK
     Dates: start: 20120611, end: 20120625
  4. OXALIPLATIN [Suspect]
     Indication: ADENOCARCINOMA PANCREAS
     Dosage: 65 MG/M2, UNK
     Dates: start: 20120611, end: 20120625
  5. EMEND [Concomitant]
     Route: 048
  6. MORPHINE SULFATE [Concomitant]
     Dosage: 15 MG, Q4H
     Route: 048
  7. PROCHLORPERAZINE [Concomitant]
     Indication: NAUSEA
     Dosage: 10 MG, Q6H
     Route: 048
  8. NEULASTA [Concomitant]
  9. DEXAMETHASONE [Concomitant]
     Indication: NAUSEA
     Dosage: 4 MG, PRN
     Route: 048
  10. LDE 225 [Suspect]
     Indication: ADENOCARCINOMA PANCREAS
     Dosage: 200 MG, UNK
     Route: 048
     Dates: start: 20120611, end: 20120625
  11. FLUOROURACIL [Suspect]
     Indication: ADENOCARCINOMA PANCREAS
     Dosage: 1200 MG/M2, UNK
     Dates: start: 20120611, end: 20120625
  12. LEUCOVORIN CALCIUM [Suspect]
     Indication: ADENOCARCINOMA PANCREAS
     Dosage: 400 MG, UNK
     Dates: start: 20120611, end: 20120625
  13. REGLAN [Concomitant]
     Dosage: 10 MG, QID
     Route: 048
  14. ONDANSETRON [Concomitant]
     Dosage: 8 MG, Q8H
     Route: 048
  15. LORAZEPAM [Concomitant]
     Indication: NAUSEA
     Dosage: 1 MG, PRN
     Route: 048

REACTIONS (4)
  - NAUSEA [None]
  - ANAEMIA [None]
  - FAILURE TO THRIVE [None]
  - DECREASED APPETITE [None]
